FAERS Safety Report 7132733-0 (Version None)
Quarter: 2010Q4

REPORT INFORMATION
  Report Type: 
  Country: None (occurrence: None)
  Receive Date: 20101129
  Receipt Date: 20101129
  Transmission Date: 20110411
  Serious: Yes (Other)
  Sender: FDA-Public Use
  Company Number: None

PATIENT
  Age: 17 Year
  Sex: Male
  Weight: 77.1115 kg

DRUGS (6)
  1. BUPROPION 300MG XL MYLAN [Suspect]
     Indication: DEPRESSION
     Dosage: ONE DAILY PO
     Route: 048
     Dates: start: 20101110, end: 20101120
  2. BUPROPION 300MG XL MYLAN [Suspect]
     Indication: DYSTHYMIC DISORDER
     Dosage: ONE DAILY PO
     Route: 048
     Dates: start: 20101110, end: 20101120
  3. ONE-A-DAY TEEN MALE MULTIVITAMIN [Concomitant]
  4. CETIRIZINE HYDROCHLORIDE [Concomitant]
  5. FISH OIL [Concomitant]
  6. VITAMIN D [Concomitant]

REACTIONS (4)
  - DISTURBANCE IN ATTENTION [None]
  - FLAT AFFECT [None]
  - PRODUCT SUBSTITUTION ISSUE [None]
  - SLEEP DISORDER [None]
